FAERS Safety Report 5663794-3 (Version None)
Quarter: 2008Q1

REPORT INFORMATION
  Report Type: 
  Country: None (occurrence: None)
  Receive Date: 20080314
  Receipt Date: 20080303
  Transmission Date: 20080703
  Serious: Yes (Other)
  Sender: FDA-Public Use
  Company Number: GB-RANBAXY-2008RR-13456

PATIENT

DRUGS (2)
  1. SIMVASTATIN [Suspect]
     Dosage: 40 MG, UNK
     Route: 048
     Dates: start: 20070405
  2. ATORVASTATIN CALCIUM [Concomitant]
     Dosage: 10 MG, UNK

REACTIONS (1)
  - MYALGIA [None]
